FAERS Safety Report 8556783-2 (Version None)
Quarter: 2012Q3

REPORT INFORMATION
  Report Type: 
  Country: None (occurrence: None)
  Receive Date: 20120801
  Receipt Date: 20120723
  Transmission Date: 20120928
  Serious: Yes (Other)
  Sender: FDA-Public Use
  Company Number: GB-NOVOPROD-356645

PATIENT
  Age: 55 Year
  Sex: Female
  Weight: 72 kg

DRUGS (2)
  1. VICTOZA [Suspect]
     Indication: PRODUCT USED FOR UNKNOWN INDICATION
     Dosage: 1.2 MG, QD
     Route: 058
     Dates: start: 20110827, end: 20120622
  2. METFORMIN HYDROCHLORIDE [Concomitant]
     Dosage: FOR 15 YEARS

REACTIONS (4)
  - ALVEOLITIS ALLERGIC [None]
  - CREPITATIONS [None]
  - PRODUCTIVE COUGH [None]
  - DYSPNOEA [None]
